FAERS Safety Report 5227601-5 (Version None)
Quarter: 2007Q1

REPORT INFORMATION
  Report Type: 
  Country: None (occurrence: None)
  Receive Date: 20061201
  Receipt Date: 20061020
  Transmission Date: 20070707
  Serious: No
  Sender: FDA-Public Use
  Company Number: US200610003883

PATIENT

DRUGS (1)
  1. CYMBALTA [Suspect]

REACTIONS (3)
  - DYSKINESIA [None]
  - DYSTONIA [None]
  - TORTICOLLIS [None]
